FAERS Safety Report 6110503-X (Version None)
Quarter: 2009Q1

REPORT INFORMATION
  Report Type: 
  Country: None (occurrence: None)
  Receive Date: 20090310
  Receipt Date: 20090305
  Transmission Date: 20090719
  Serious: Yes (Life-Threatening, Hospitalization, Other)
  Sender: FDA-Public Use
  Company Number: GB-ROXANE LABORATORIES, INC.-2009-RO-00010RO

PATIENT
  Age: 44 Year
  Sex: Female

DRUGS (17)
  1. CITALOPRAM HYDROBROMIDE [Suspect]
     Indication: DEPRESSION
     Dosage: 20MG
     Route: 048
  2. CITALOPRAM HYDROBROMIDE [Suspect]
  3. DEXAMETHASONE [Suspect]
  4. MORPHINE [Suspect]
     Indication: ANALGESIA
  5. METHYLENE BLUE [Suspect]
     Indication: PREOPERATIVE CARE
     Route: 042
  6. METHYLENE BLUE [Suspect]
     Indication: PARATHYROIDECTOMY
  7. PROPOFOL [Suspect]
     Indication: SEDATION
  8. PROPOFOL [Suspect]
  9. REMIFENTANIL [Suspect]
  10. ROCURONIUM BROMIDE [Suspect]
     Indication: PREOPERATIVE CARE
  11. ASPIRIN [Concomitant]
     Dosage: 75MG
  12. SIMVASTATIN [Concomitant]
     Dosage: 40MG
  13. ATENOLOL [Concomitant]
     Dosage: 50MG
  14. ISOSORBIDE MONONITRATE [Concomitant]
     Dosage: 20MG
  15. BENDROFLUMETHIAZIDE [Concomitant]
     Dosage: 2.5MG
  16. FELODIPINE [Concomitant]
     Dosage: 5MG
  17. ALFENTANIL [Concomitant]
     Indication: SEDATION

REACTIONS (19)
  - AGITATION [None]
  - AKATHISIA [None]
  - BLOOD CALCIUM INCREASED [None]
  - BLOOD PHOSPHORUS INCREASED [None]
  - C-REACTIVE PROTEIN INCREASED [None]
  - DRUG INTERACTION [None]
  - DRUG TOXICITY [None]
  - EXTENSOR PLANTAR RESPONSE [None]
  - GLASGOW COMA SCALE ABNORMAL [None]
  - HYPERPARATHYROIDISM [None]
  - HYPERREFLEXIA [None]
  - MYDRIASIS [None]
  - MYOCLONUS [None]
  - PUPILLARY REFLEX IMPAIRED [None]
  - RESTLESSNESS [None]
  - SEROTONIN SYNDROME [None]
  - SPEECH DISORDER [None]
  - STARING [None]
  - WHITE BLOOD CELL COUNT INCREASED [None]
